FAERS Safety Report 7122980-6 (Version None)
Quarter: 2010Q4

REPORT INFORMATION
  Report Type: 
  Country: None (occurrence: None)
  Receive Date: 20101124
  Receipt Date: 20101021
  Transmission Date: 20110411
  Serious: Yes (Other)
  Sender: FDA-Public Use
  Company Number: US-AMGEN-KDL423601

PATIENT

DRUGS (3)
  1. ENBREL [Suspect]
     Indication: RHEUMATOID ARTHRITIS
     Dosage: 50 MG, QWK
     Route: 058
     Dates: start: 20050922
  2. ENBREL [Suspect]
     Dosage: 25 MG, 2 TIMES/WK
     Dates: start: 20060201, end: 20070401
  3. REMICADE [Concomitant]
     Dosage: UNK
     Dates: start: 20070401, end: 20070401

REACTIONS (5)
  - ARTHRALGIA [None]
  - DRUG HYPERSENSITIVITY [None]
  - INFLAMMATION [None]
  - JOINT SWELLING [None]
  - LABORATORY TEST ABNORMAL [None]
